FAERS Safety Report 19918132 (Version 1)
Quarter: 2021Q4

REPORT INFORMATION
  Report Type: Spontaneous
  Country: US (occurrence: US)
  Receive Date: 20211004
  Receipt Date: 20211004
  Transmission Date: 20220303
  Serious: No
  Sender: FDA-Public Use
  Company Number: US-TAKEDA-2021TUS061059

PATIENT

DRUGS (2)
  1. RAMELTEON [Suspect]
     Active Substance: RAMELTEON
     Indication: Product used for unknown indication
     Dosage: UNK
     Route: 065
  2. SONATA [Concomitant]
     Active Substance: ZALEPLON
     Indication: Insomnia
     Dosage: UNK
     Route: 065
     Dates: start: 20210930

REACTIONS (1)
  - Drug ineffective [Unknown]
